FAERS Safety Report 12133264 (Version 1)
Quarter: 2016Q1

REPORT INFORMATION
  Report Type: Report from Study
  Country: US (occurrence: US)
  Receive Date: 20160301
  Receipt Date: 20160301
  Transmission Date: 20160526
  Serious: Yes (Life-Threatening)
  Sender: FDA-Public Use
  Company Number: US-BEH-2016059505

PATIENT
  Age: 71 Year
  Sex: Female
  Weight: 104.5 kg

DRUGS (5)
  1. PHYTONADIONE. [Suspect]
     Active Substance: PHYTONADIONE
     Indication: RETROPERITONEAL HAEMORRHAGE
     Route: 042
     Dates: start: 20150108
  2. COUMADIN [Concomitant]
     Active Substance: WARFARIN SODIUM
     Indication: ATRIAL FIBRILLATION
  3. KCENTRA [Suspect]
     Active Substance: COAGULATION FACTOR IX HUMAN\COAGULATION FACTOR VII HUMAN\COAGULATION FACTOR X HUMAN\PROTEIN C\PROTEIN S HUMAN\PROTHROMBIN
     Indication: ANTICOAGULANT THERAPY
     Dates: start: 20150108
  4. KCENTRA [Suspect]
     Active Substance: COAGULATION FACTOR IX HUMAN\COAGULATION FACTOR VII HUMAN\COAGULATION FACTOR X HUMAN\PROTEIN C\PROTEIN S HUMAN\PROTHROMBIN
     Indication: RETROPERITONEAL HAEMATOMA
     Dates: start: 20150108
  5. PHYTONADIONE. [Suspect]
     Active Substance: PHYTONADIONE
     Indication: INTERNATIONAL NORMALISED RATIO INCREASED
     Route: 042
     Dates: start: 20150108

REACTIONS (5)
  - Electrocardiogram ST segment abnormal [Not Recovered/Not Resolved]
  - Pulseless electrical activity [Not Recovered/Not Resolved]
  - Hypotension [Not Recovered/Not Resolved]
  - Acute myocardial infarction [Not Recovered/Not Resolved]
  - Bradycardia [Not Recovered/Not Resolved]

NARRATIVE: CASE EVENT DATE: 20150108
